FAERS Safety Report 4588584-4 (Version None)
Quarter: 2005Q1

REPORT INFORMATION
  Report Type: 
  Country: None (occurrence: None)
  Receive Date: 20050216
  Receipt Date: 20050216
  Transmission Date: 20050727
  Serious: Yes (Other)
  Sender: FDA-Public Use
  Company Number: None

PATIENT
  Age: 24 Year
  Sex: Female
  Weight: 65.7716 kg

DRUGS (1)
  1. ALDARA [Suspect]
     Indication: CONDYLOMA ACUMINATUM
     Dosage: 1 PACKET 1X EVENING TOPICAL
     Route: 061
     Dates: start: 20050211, end: 20050213

REACTIONS (5)
  - DYSURIA [None]
  - SKIN HAEMORRHAGE [None]
  - SKIN REACTION [None]
  - SKIN ULCER [None]
  - VULVAL OEDEMA [None]
